FAERS Safety Report 18851119 (Version 1)
Quarter: 2021Q1

REPORT INFORMATION
  Report Type: Spontaneous
  Country: GB (occurrence: GB)
  Receive Date: 20210205
  Receipt Date: 20210205
  Transmission Date: 20210420
  Serious: Yes (Disabling, Other)
  Sender: FDA-Public Use
  Company Number: GB-LEO PHARMA-334515

PATIENT
  Age: 26 Year
  Sex: Male
  Weight: 74 kg

DRUGS (5)
  1. PROTOPIC [Suspect]
     Active Substance: TACROLIMUS
     Indication: ECZEMA
     Dosage: TWICE DAILY APPLICATION DURING FLARES
     Route: 061
     Dates: start: 2018, end: 20201217
  2. TERBINAFIN [Concomitant]
     Active Substance: TERBINAFINE
     Indication: ILL-DEFINED DISORDER
  3. FEXOFENADINE HYDROCHLORIDE. [Concomitant]
     Active Substance: FEXOFENADINE HYDROCHLORIDE
     Indication: ILL-DEFINED DISORDER
  4. FLUCLOXACILLINE [Concomitant]
     Active Substance: FLUCLOXACILLIN
     Indication: ILL-DEFINED DISORDER
  5. BETNOVATE [Suspect]
     Active Substance: BETAMETHASONE
     Indication: ECZEMA
     Dosage: TWICE DAILY APPLICATION DURING FLARES
     Route: 061
     Dates: start: 2014, end: 20201217

REACTIONS (6)
  - Crying [Not Recovered/Not Resolved]
  - Skin haemorrhage [Not Recovered/Not Resolved]
  - Adverse drug reaction [Not Recovered/Not Resolved]
  - Application site inflammation [Not Recovered/Not Resolved]
  - Insomnia [Not Recovered/Not Resolved]
  - Application site pain [Not Recovered/Not Resolved]

NARRATIVE: CASE EVENT DATE: 20201221
